FAERS Safety Report 7321560-7 (Version None)
Quarter: 2011Q1

REPORT INFORMATION
  Report Type: 
  Country: None (occurrence: None)
  Receive Date: 20110228
  Receipt Date: 20100427
  Transmission Date: 20110831
  Serious: No
  Sender: FDA-Public Use
  Company Number: A0856906A

PATIENT
  Age: 62 Year
  Sex: Female

DRUGS (17)
  1. ACIDOPHILUS [Concomitant]
  2. GLUCOSAMINE CHONDROITIN [Concomitant]
  3. POTASSIUM [Concomitant]
  4. IBUPROFEN [Concomitant]
  5. VITAMIN D [Concomitant]
  6. VITAMIN E [Concomitant]
  7. HYDROCODONE BITARTRATE [Concomitant]
  8. OMEGA 3-6-9 [Concomitant]
  9. VALTREX [Suspect]
     Dosage: 1G PER DAY
     Route: 048
     Dates: start: 20090301, end: 20090925
  10. CALCIUM + VITAMIN D [Concomitant]
  11. AMBIEN [Concomitant]
  12. BIOTIN [Concomitant]
  13. FOSAMAX PLUS D [Concomitant]
  14. MAGNESIUM [Concomitant]
  15. FOLIC ACID [Concomitant]
  16. L-LYSINE [Concomitant]
  17. CENTRUM [Concomitant]

REACTIONS (4)
  - NAIL BED DISORDER [None]
  - NAIL DISCOLOURATION [None]
  - BLOOD URINE PRESENT [None]
  - OVERDOSE [None]
